FAERS Safety Report 7049188-7 (Version None)
Quarter: 2010Q4

REPORT INFORMATION
  Report Type: 
  Country: None (occurrence: None)
  Receive Date: 20101018
  Receipt Date: 20100907
  Transmission Date: 20110411
  Serious: No
  Sender: FDA-Public Use
  Company Number: JP-ACTELION-A-JP2009-27353

PATIENT
  Sex: Female
  Weight: 14 kg

DRUGS (7)
  1. BOSENTAN TABLET 62.5 MG JPN [Suspect]
     Indication: PULMONARY ARTERIAL HYPERTENSION
     Dosage: 62.5 MG, BID
     Route: 048
     Dates: start: 20061216
  2. BOSENTAN TABLET 62.5 MG JPN [Suspect]
     Dosage: 31.25 MG, BID
     Route: 048
     Dates: start: 20061125, end: 20061208
  3. BOSENTAN TABLET 62.5 MG JPN [Suspect]
     Dosage: 46.88 MG, BID
     Route: 048
     Dates: start: 20061209, end: 20061215
  4. BERAPROST [Suspect]
     Dosage: UNK
     Dates: start: 20060428, end: 20071122
  5. METHIMAZOLE [Concomitant]
  6. DIGOXIN [Concomitant]
  7. ASPARTATE POTASSIUM [Concomitant]

REACTIONS (4)
  - EYE DISORDER [None]
  - HYPERTHYROIDISM [None]
  - POTENTIATING DRUG INTERACTION [None]
  - TACHYCARDIA [None]
